FAERS Safety Report 6934081-8 (Version None)
Quarter: 2010Q3

REPORT INFORMATION
  Report Type: 
  Country: None (occurrence: None)
  Receive Date: 20100820
  Receipt Date: 20100807
  Transmission Date: 20110219
  Serious: Yes (Other)
  Sender: FDA-Public Use
  Company Number: JP-PFIZER INC-2010097771

PATIENT
  Age: 55 Year
  Sex: Female

DRUGS (2)
  1. SEIBULE [Suspect]
     Indication: DIABETES MELLITUS
     Dosage: UNK
     Route: 048
  2. AMARYL [Concomitant]
     Indication: DIABETES MELLITUS
     Dosage: UNK
     Route: 048

REACTIONS (3)
  - DIARRHOEA [None]
  - EYE SWELLING [None]
  - SWELLING FACE [None]
